FAERS Safety Report 4461164-7 (Version None)
Quarter: 2004Q3

REPORT INFORMATION
  Report Type: 
  Country: None (occurrence: None)
  Receive Date: 20040928
  Receipt Date: 20040831
  Transmission Date: 20050211
  Serious: Yes (Congenital Anomaly)
  Sender: FDA-Public Use
  Company Number: US-BRISTOL-MYERS SQUIBB COMPANY-12710182

PATIENT

DRUGS (7)
  1. ABILIFY [Suspect]
     Dosage: INCREASED TO 20 MG ON 10-DEC-2003 AND DISCONTINUED ON 29-DEC-2003.
     Route: 064
     Dates: end: 20031229
  2. AMBIEN [Suspect]
     Route: 064
  3. ATIVAN [Suspect]
     Dosage: DOSE TITRATED UPWARD DURING PREGNANCY TO 1 MG FOUR TIMES DAILY.
     Route: 064
     Dates: start: 20031229
  4. EFFEXOR XR [Suspect]
     Route: 064
  5. GABITRIL [Suspect]
     Dosage: 4 MG DAILY IN THE MORNING AND 8 MG DAILY AT HS.
     Route: 064
     Dates: end: 20031229
  6. KLONOPIN [Suspect]
     Route: 064
     Dates: end: 20031229
  7. REMERON [Suspect]
     Dosage: INCREASED TO 60 MG DAILY AT HS ON 23-FEB-2004.
     Route: 064

REACTIONS (3)
  - CONGENITAL ANOMALY [None]
  - CONGENITAL ECTOPIC BLADDER [None]
  - MENINGOMYELOCELE [None]
